FAERS Safety Report 11619725 (Version 2)
Quarter: 2015Q4

REPORT INFORMATION
  Report Type: Spontaneous
  Country: GB (occurrence: GB)
  Receive Date: 20151012
  Receipt Date: 20151015
  Transmission Date: 20160304
  Serious: Yes (Other)
  Sender: FDA-Public Use
  Company Number: GB-JNJFOC-20151005438

PATIENT
  Sex: Female

DRUGS (1)
  1. SIMPONI [Suspect]
     Active Substance: GOLIMUMAB
     Indication: PRODUCT USED FOR UNKNOWN INDICATION
     Route: 058

REACTIONS (11)
  - Abscess oral [Unknown]
  - Groin pain [Unknown]
  - Arthralgia [Unknown]
  - Ear infection [Unknown]
  - Abdominal discomfort [Unknown]
  - Muscle strain [Unknown]
  - Drug ineffective [Unknown]
  - Tongue abscess [Unknown]
  - Mouth ulceration [Unknown]
  - Pain in extremity [Unknown]
  - Urinary tract infection [Unknown]
